FAERS Safety Report 8983765 (Version 2)
Quarter: 2013Q1

REPORT INFORMATION
  Report Type: Report from Study
  Country: US (occurrence: US)
  Receive Date: 20121224
  Receipt Date: 20130125
  Transmission Date: 20140127
  Serious: Yes (Other)
  Sender: FDA-Public Use
  Company Number: US-ROCHE-1167745

PATIENT
  Age: 52 None
  Sex: Male
  Weight: 88.08 kg

DRUGS (1)
  1. XOLAIR [Suspect]
     Indication: ASTHMA
     Dosage: 3 INJECTIONS
     Route: 058
     Dates: start: 2003, end: 2005

REACTIONS (2)
  - Staphylococcal infection [Not Recovered/Not Resolved]
  - Glucose tolerance impaired [Not Recovered/Not Resolved]
